FAERS Safety Report 21810908 (Version 1)
Quarter: 2023Q1

REPORT INFORMATION
  Report Type: Spontaneous
  Country: RU (occurrence: None)
  Receive Date: 20230103
  Receipt Date: 20230103
  Transmission Date: 20230418
  Serious: Yes (Other)
  Sender: FDA-Public Use
  Company Number: RU-Eisai Medical Research-EC-2022-130884

PATIENT
  Age: 62 Year
  Sex: Male
  Weight: 85 kg

DRUGS (4)
  1. LENVIMA [Suspect]
     Active Substance: LENVATINIB
     Indication: Renal cell carcinoma
     Route: 048
     Dates: start: 202207, end: 2022
  2. LENVIMA [Suspect]
     Active Substance: LENVATINIB
     Route: 048
     Dates: start: 2022, end: 2022
  3. LENVIMA [Suspect]
     Active Substance: LENVATINIB
     Route: 048
     Dates: start: 2022
  4. EVEROLIMUS [Concomitant]
     Active Substance: EVEROLIMUS
     Indication: Renal cell carcinoma
     Dosage: DOSE AND FREQUENCY UNKNOWN
     Route: 048

REACTIONS (9)
  - Dermatitis acneiform [Not Recovered/Not Resolved]
  - Pollakiuria [Not Recovered/Not Resolved]
  - Urinary incontinence [Not Recovered/Not Resolved]
  - Pain in extremity [Not Recovered/Not Resolved]
  - Dysphonia [Recovered/Resolved]
  - Laryngitis [Recovered/Resolved]
  - Tongue discomfort [Recovered/Resolved]
  - Dyspnoea [Not Recovered/Not Resolved]
  - Blood pressure increased [Not Recovered/Not Resolved]

NARRATIVE: CASE EVENT DATE: 20220701
